FAERS Safety Report 9242931 (Version 5)
Quarter: 2013Q4

REPORT INFORMATION
  Report Type: Spontaneous
  Country: None (occurrence: DE)
  Receive Date: 20130419
  Receipt Date: 20131226
  Transmission Date: 20140711
  Serious: Yes (Hospitalization, Other)
  Sender: FDA-Public Use
  Company Number: DE-INCYTE CORPORATION-2013IN000703

PATIENT
  Sex: Male
  Weight: 95 kg

DRUGS (19)
  1. JAKAVI [Suspect]
     Indication: MYELOFIBROSIS
     Dosage: 15 MG, BID
     Route: 065
     Dates: start: 20120921, end: 20130110
  2. JAKAVI [Suspect]
     Dosage: 35 MG (20MG-0MG-15MG), DAILY
     Route: 065
     Dates: start: 20130111, end: 20130124
  3. JAKAVI [Suspect]
     Dosage: 20 MG, BID
     Route: 065
     Dates: start: 20130124, end: 20130212
  4. JAKAVI [Suspect]
     Dosage: 10 MG (2X5 MG), DAILY
     Route: 065
     Dates: start: 20130403
  5. EXJADE [Suspect]
     Indication: IRON OVERLOAD
     Dosage: 500 MG, QD
     Route: 048
     Dates: start: 20120705, end: 201208
  6. EXJADE [Suspect]
     Dosage: 750 MG, BID
     Route: 048
     Dates: start: 201208, end: 201208
  7. EXJADE [Suspect]
     Dosage: 1000 MG, QD
     Route: 065
     Dates: start: 201208, end: 201208
  8. EXJADE [Suspect]
     Dosage: 1500 MG, QD
     Route: 048
     Dates: start: 201210, end: 20130223
  9. EXJADE [Suspect]
     Dosage: 1500 MG, QD
     Route: 048
     Dates: start: 20130305, end: 201307
  10. EXJADE [Suspect]
     Dosage: 2000 MG, QD
     Route: 048
     Dates: start: 20130801
  11. EXJADE [Suspect]
     Dosage: 1500 MG, QD
     Route: 048
     Dates: start: 20130925
  12. METAMIZOLE [Concomitant]
     Dosage: UNK
     Dates: start: 2005
  13. ALLOPURINOL [Concomitant]
     Dosage: UNK
     Dates: start: 201204
  14. PANTOPRAZOLE [Concomitant]
     Dosage: UNK
  15. MUCOFALK [Concomitant]
  16. ERYTHROPOIETIN [Concomitant]
     Dosage: UNK
     Dates: start: 20130218, end: 20130411
  17. RANITIDINE [Concomitant]
     Dosage: UNK
     Dates: start: 20130918
  18. PREDNISOLONE [Concomitant]
     Dosage: UNK
     Dates: start: 20130918
  19. ERYTHROCYTES [Concomitant]

REACTIONS (8)
  - Pneumonia [Recovered/Resolved]
  - Sepsis [Recovered/Resolved]
  - Splenomegaly [Unknown]
  - Platelet count decreased [Recovering/Resolving]
  - Thrombocytosis [Unknown]
  - Nasopharyngitis [Recovered/Resolved]
  - Skin reaction [Unknown]
  - Herpes zoster [Recovering/Resolving]
